FAERS Safety Report 4706491-0 (Version None)
Quarter: 2005Q3

REPORT INFORMATION
  Report Type: 
  Country: None (occurrence: None)
  Receive Date: 20050705
  Receipt Date: 20050627
  Transmission Date: 20060218
  Serious: Yes (Other)
  Sender: FDA-Public Use
  Company Number: 2005AC00890

PATIENT
  Age: 83 Year
  Sex: Female

DRUGS (2)
  1. CO-AMOXICLAV [Suspect]
     Indication: SPINAL ANAESTHESIA
     Dosage: 1.2G PER DAY
     Route: 065
  2. BUPIVACAINE [Suspect]
     Indication: SPINAL ANAESTHESIA
     Route: 065

REACTIONS (2)
  - ANAPHYLACTIC SHOCK [None]
  - HYPOTENSION [None]
